FAERS Safety Report 10349452 (Version 3)
Quarter: 2014Q4

REPORT INFORMATION
  Report Type: Spontaneous
  Country: JP (occurrence: None)
  Receive Date: 20140728
  Receipt Date: 20141211
  Transmission Date: 20150528
  Serious: Yes (Other)
  Sender: FDA-Public Use
  Company Number: 2456794

PATIENT
  Age: 3 Month
  Sex: Female
  Weight: 7.5 kg

DRUGS (6)
  1. DEXMEDETOMIDINE HYDROCHLORIDE. [Suspect]
     Active Substance: DEXMEDETOMIDINE HYDROCHLORIDE
     Indication: SEDATION
     Route: 041
     Dates: start: 20140221, end: 20140228
  2. LEVETIRACETAM. [Concomitant]
     Active Substance: LEVETIRACETAM
  3. CEFAZOLIN SODIUM. [Concomitant]
     Active Substance: CEFAZOLIN SODIUM
  4. PHENOBARBITAL. [Concomitant]
     Active Substance: PHENOBARBITAL
  5. HEPARIN SODIUM. [Concomitant]
     Active Substance: HEPARIN SODIUM
  6. SPIRONOLACTONE. [Concomitant]
     Active Substance: SPIRONOLACTONE

REACTIONS (6)
  - Hyperglycaemia [None]
  - Rebound effect [None]
  - Heart rate increased [None]
  - Metabolic disorder [None]
  - Sympathicotonia [None]
  - Withdrawal syndrome [None]

NARRATIVE: CASE EVENT DATE: 20140228
